FAERS Safety Report 19157734 (Version 1)
Quarter: 2021Q2

REPORT INFORMATION
  Report Type: Other
  Country: GB (occurrence: GB)
  Receive Date: 20210420
  Receipt Date: 20210420
  Transmission Date: 20210717
  Serious: Yes (Other)
  Sender: FDA-Public Use
  Company Number: GB-GLENMARK PHARMACEUTICALS-2021GMK053477

PATIENT

DRUGS (1)
  1. TOPIRAMATE. [Suspect]
     Active Substance: TOPIRAMATE
     Indication: MIGRAINE
     Dosage: 75 MILLIGRAM
     Route: 048
     Dates: start: 20180529, end: 20181108

REACTIONS (5)
  - Decreased appetite [Recovered/Resolved]
  - Alopecia [Recovered/Resolved]
  - Weight decreased [Unknown]
  - Breast cancer [Recovered/Resolved]
  - Nausea [Recovered/Resolved]

NARRATIVE: CASE EVENT DATE: 20180924
